FAERS Safety Report 8800889 (Version 2)
Quarter: 2015Q2

REPORT INFORMATION
  Report Type: Report from Study
  Country: US (occurrence: US)
  Receive Date: 20120920
  Receipt Date: 20150619
  Transmission Date: 20150821
  Serious: Yes (Death)
  Sender: FDA-Public Use
  Company Number: US-ROCHE-1124697

PATIENT
  Age: 44 Year
  Sex: Female
  Weight: 48.12 kg

DRUGS (6)
  1. ALOXI [Concomitant]
     Active Substance: PALONOSETRON HYDROCHLORIDE
     Route: 042
  2. DECADRON [Concomitant]
     Active Substance: DEXAMETHASONE
     Route: 048
  3. TOPAMAX [Concomitant]
     Active Substance: TOPIRAMATE
     Route: 065
  4. IRINOTECAN [Concomitant]
     Active Substance: IRINOTECAN
     Route: 042
  5. DECADRON [Concomitant]
     Active Substance: DEXAMETHASONE
     Route: 042
  6. AVASTIN [Suspect]
     Active Substance: BEVACIZUMAB
     Indication: BRAIN NEOPLASM MALIGNANT
     Route: 042
     Dates: start: 20070531

REACTIONS (8)
  - Fine motor skill dysfunction [Unknown]
  - Cushingoid [Unknown]
  - Nervous system disorder [Unknown]
  - Gait disturbance [Unknown]
  - Memory impairment [Unknown]
  - Scab [Recovered/Resolved]
  - Off label use [Unknown]
  - Death [Fatal]

NARRATIVE: CASE EVENT DATE: 20070906
